FAERS Safety Report 6382551-6 (Version None)
Quarter: 2009Q3

REPORT INFORMATION
  Report Type: 
  Country: None (occurrence: None)
  Receive Date: 20090930
  Receipt Date: 20090921
  Transmission Date: 20100115
  Serious: Yes (Death)
  Sender: FDA-Public Use
  Company Number: A0808953A

PATIENT
  Sex: Male

DRUGS (6)
  1. SERETIDE [Suspect]
     Indication: CHRONIC OBSTRUCTIVE PULMONARY DISEASE
     Route: 055
     Dates: start: 20000101, end: 20090101
  2. NORVASC [Concomitant]
  3. LIPITOR [Concomitant]
  4. ALBUTEROL [Concomitant]
  5. UNKNOWN MEDICATION [Concomitant]
  6. TEOFILINA [Concomitant]

REACTIONS (1)
  - CHRONIC OBSTRUCTIVE PULMONARY DISEASE [None]
